FAERS Safety Report 6054862-5 (Version None)
Quarter: 2009Q1

REPORT INFORMATION
  Report Type: 
  Country: None (occurrence: None)
  Receive Date: 20090128
  Receipt Date: 20090116
  Transmission Date: 20090719
  Serious: Yes (Death)
  Sender: FDA-Public Use
  Company Number: ES-PFIZER INC-2009151530

PATIENT

DRUGS (1)
  1. DOSTINEX [Suspect]
     Route: 048
     Dates: start: 19980101, end: 20080101

REACTIONS (2)
  - MITRAL VALVE INCOMPETENCE [None]
  - MITRAL VALVE PROLAPSE [None]
